FAERS Safety Report 17842347 (Version 2)
Quarter: 2020Q2

REPORT INFORMATION
  Report Type: Spontaneous
  Country: JP (occurrence: JP)
  Receive Date: 20200529
  Receipt Date: 20200608
  Transmission Date: 20200714
  Serious: Yes (Other)
  Sender: FDA-Public Use
  Company Number: NVSC2020JP149023

PATIENT
  Age: 83 Year
  Sex: Female

DRUGS (7)
  1. RIVASTACH [Suspect]
     Active Substance: RIVASTIGMINE
     Dosage: 18 MG
     Route: 062
     Dates: start: 20200515
  2. RIVASTACH [Suspect]
     Active Substance: RIVASTIGMINE
     Indication: DEMENTIA ALZHEIMER^S TYPE
     Dosage: UNK
     Route: 062
  3. RIVASTACH [Suspect]
     Active Substance: RIVASTIGMINE
     Dosage: 18 MG
     Route: 062
  4. RIVASTACH [Suspect]
     Active Substance: RIVASTIGMINE
     Dosage: 9 MG
     Route: 062
  5. RIVASTACH [Suspect]
     Active Substance: RIVASTIGMINE
     Dosage: 4.5 MG
     Route: 062
     Dates: start: 20200407, end: 20200416
  6. RIVASTACH [Suspect]
     Active Substance: RIVASTIGMINE
     Dosage: 9 MG
     Route: 062
     Dates: start: 20200417, end: 20200430
  7. RIVASTACH [Suspect]
     Active Substance: RIVASTIGMINE
     Dosage: 13.5 MG
     Route: 062
     Dates: start: 20200501, end: 20200514

REACTIONS (7)
  - Abdominal discomfort [Unknown]
  - Cholinergic syndrome [Unknown]
  - Night sweats [Unknown]
  - Miosis [Unknown]
  - Diarrhoea [Unknown]
  - Abdominal pain [Unknown]
  - Dyspnoea [Unknown]
